FAERS Safety Report 8539371-3 (Version None)
Quarter: 2012Q3

REPORT INFORMATION
  Report Type: 
  Country: None (occurrence: None)
  Receive Date: 20120726
  Receipt Date: 20110725
  Transmission Date: 20120928
  Serious: No
  Sender: FDA-Public Use
  Company Number: US-ASTRAZENECA-2011SE44159

PATIENT
  Sex: Female

DRUGS (6)
  1. KLONOPIN [Concomitant]
  2. CELEXA [Concomitant]
  3. SEROQUEL XR [Suspect]
     Route: 048
     Dates: start: 20070101
  4. SEROQUEL XR [Suspect]
     Indication: BIPOLAR DISORDER
     Route: 048
  5. SEROQUEL XR [Suspect]
     Route: 048
  6. PERCOCET [Concomitant]
     Indication: PAIN

REACTIONS (6)
  - WEIGHT DECREASED [None]
  - ANXIETY [None]
  - WEIGHT INCREASED [None]
  - PANIC ATTACK [None]
  - PALPITATIONS [None]
  - INSOMNIA [None]
